FAERS Safety Report 24163772 (Version 1)
Quarter: 2024Q3

REPORT INFORMATION
  Report Type: Spontaneous
  Country: JP (occurrence: JP)
  Receive Date: 20240801
  Receipt Date: 20240801
  Transmission Date: 20241016
  Serious: Yes (Other)
  Sender: GENMAB
  Company Number: JP-GENMAB-2024-02695

PATIENT
  Age: 83 Year
  Sex: Male

DRUGS (1)
  1. EPKINLY [Suspect]
     Active Substance: EPCORITAMAB-BYSP
     Indication: Diffuse large B-cell lymphoma refractory
     Dosage: UNK, FOUR DOSES WERE ADMINISTERED IN CYCLE 1
     Route: 065

REACTIONS (2)
  - Second primary malignancy [Unknown]
  - Cytokine release syndrome [Unknown]
